FAERS Safety Report 19929870 (Version 1)
Quarter: 2021Q4

REPORT INFORMATION
  Report Type: Spontaneous
  Country: US (occurrence: US)
  Receive Date: 20211007
  Receipt Date: 20211007
  Transmission Date: 20220303
  Serious: Yes (Other)
  Sender: FDA-Public Use
  Company Number: US-ELI_LILLY_AND_COMPANY-US202109011647

PATIENT
  Sex: Female

DRUGS (2)
  1. HUMALOG [Suspect]
     Active Substance: INSULIN LISPRO
     Indication: Type 1 diabetes mellitus
     Dosage: 98 U, DAILY
     Route: 058
  2. PREDNISONE [Suspect]
     Active Substance: PREDNISONE
     Indication: Chronic obstructive pulmonary disease
     Dosage: UNK UNK, UNKNOWN
     Route: 065
     Dates: start: 2013

REACTIONS (3)
  - Myocardial infarction [Unknown]
  - Chronic obstructive pulmonary disease [Not Recovered/Not Resolved]
  - Blood glucose increased [Not Recovered/Not Resolved]
